FAERS Safety Report 6032007-5 (Version None)
Quarter: 2009Q1

REPORT INFORMATION
  Report Type: 
  Country: None (occurrence: None)
  Receive Date: 20090107
  Receipt Date: 20081229
  Transmission Date: 20090719
  Serious: Yes (Hospitalization)
  Sender: FDA-Public Use
  Company Number: 20096034

PATIENT
  Sex: Male
  Weight: 64.2 kg

DRUGS (1)
  1. GABALONI INTRATHECAL(BACLOFEN INJECTION) [Suspect]
     Indication: MUSCLE SPASTICITY
     Dosage: 35 MCG, DAILY, INTRATHECAL
     Route: 037
     Dates: start: 20071023

REACTIONS (2)
  - PNEUMONIA [None]
  - RESPIRATORY FAILURE [None]
